FAERS Safety Report 5502444-3 (Version None)
Quarter: 2007Q4

REPORT INFORMATION
  Report Type: 
  Country: None (occurrence: None)
  Receive Date: 20071030
  Receipt Date: 20071015
  Transmission Date: 20080405
  Serious: Yes (Death, Hospitalization)
  Sender: FDA-Public Use
  Company Number: DE-PFIZER INC-2007078481

PATIENT
  Sex: Female
  Weight: 76 kg

DRUGS (12)
  1. SUTENT [Suspect]
     Indication: RENAL CELL CARCINOMA STAGE UNSPECIFIED
     Route: 048
  2. SUTENT [Suspect]
     Indication: METASTATIC RENAL CELL CARCINOMA
  3. LERCANIDIPINE [Concomitant]
  4. CYNT [Concomitant]
  5. METOPROLOL [Concomitant]
  6. COMBAREN [Concomitant]
     Route: 048
     Dates: start: 20070503, end: 20070603
  7. MORPHINE SULFATE [Concomitant]
     Dates: start: 20070621, end: 20070907
  8. OMEPRAZOLE [Concomitant]
     Dates: start: 20070501, end: 20070601
  9. ASPIRIN [Concomitant]
  10. OXYGESIC [Concomitant]
     Dates: start: 20070501, end: 20070601
  11. IBUPROFEN [Concomitant]
     Dates: start: 20070501, end: 20070601
  12. SEVREDOL [Concomitant]
     Dates: start: 20070501, end: 20070601

REACTIONS (3)
  - DISEASE PROGRESSION [None]
  - HAEMATURIA [None]
  - RENAL CELL CARCINOMA STAGE UNSPECIFIED [None]
